FAERS Safety Report 15447884 (Version 1)
Quarter: 2018Q3

REPORT INFORMATION
  Report Type: Spontaneous
  Country: US (occurrence: US)
  Receive Date: 20180928
  Receipt Date: 20180928
  Transmission Date: 20181010
  Serious: No
  Sender: FDA-Public Use
  Company Number: US-BIOGEN-2018BI00635141

PATIENT
  Sex: Female

DRUGS (1)
  1. TECFIDERA [Suspect]
     Active Substance: DIMETHYL FUMARATE
     Indication: MULTIPLE SCLEROSIS
     Route: 048
     Dates: start: 20150508

REACTIONS (5)
  - Spinal disorder [Unknown]
  - Feeling abnormal [Unknown]
  - Optic nerve disorder [Unknown]
  - Central nervous system lesion [Unknown]
  - Optic neuritis [Unknown]
